FAERS Safety Report 6573978-8 (Version None)
Quarter: 2010Q1

REPORT INFORMATION
  Report Type: 
  Country: None (occurrence: None)
  Receive Date: 20100208
  Receipt Date: 20100129
  Transmission Date: 20100710
  Serious: Yes (Other)
  Sender: FDA-Public Use
  Company Number: US-JNJFOC-20100201174

PATIENT
  Age: 70 Year
  Sex: Female
  Weight: 55.34 kg

DRUGS (4)
  1. EXTRA STRENGTH TYLENOL [Suspect]
     Indication: HEADACHE
     Dosage: 1000 TO 1500 MG, DAILY, ORAL
     Route: 048
  2. EXTRA STRENGTH TYLENOL [Suspect]
     Indication: BACK PAIN
     Dosage: 1000 TO 1500 MG, DAILY, ORAL
     Route: 048
  3. PREMARIN [Concomitant]
     Indication: MENOPAUSE
  4. ENALAPRIL MALEATE [Concomitant]
     Indication: BLOOD PRESSURE FLUCTUATION

REACTIONS (5)
  - ABDOMINAL PAIN UPPER [None]
  - BLOOD URINE PRESENT [None]
  - EXPIRED DRUG ADMINISTERED [None]
  - PRODUCT QUALITY ISSUE [None]
  - URINARY TRACT INFECTION [None]
